FAERS Safety Report 25504420 (Version 2)
Quarter: 2025Q3

REPORT INFORMATION
  Report Type: Spontaneous
  Country: US (occurrence: US)
  Receive Date: 20250702
  Receipt Date: 20250717
  Transmission Date: 20251020
  Serious: Yes (Other)
  Sender: VERTEX
  Company Number: US-VERTEX PHARMACEUTICALS-2025-010743

PATIENT
  Age: 3 Year

DRUGS (6)
  1. TRIKAFTA [Suspect]
     Active Substance: ELEXACAFTOR\IVACAFTOR\TEZACAFTOR
     Indication: Cystic fibrosis
     Dosage: BLUE PACKET IN AM; GREEN PACKET IN PM
     Route: 048
     Dates: start: 20231001
  2. ALBUTEROL [Concomitant]
     Active Substance: ALBUTEROL
  3. VITAMIN D [Concomitant]
     Active Substance: VITAMIN D NOS
  4. PULMOZYME [Concomitant]
     Active Substance: DORNASE ALFA
  5. CREON [Concomitant]
     Active Substance: PANCRELIPASE AMYLASE\PANCRELIPASE LIPASE\PANCRELIPASE PROTEASE
  6. MIRALAX [Concomitant]
     Active Substance: POLYETHYLENE GLYCOL 3350

REACTIONS (1)
  - Hordeolum [Unknown]

NARRATIVE: CASE EVENT DATE: 20250201
